FAERS Safety Report 13904900 (Version 3)
Quarter: 2017Q4

REPORT INFORMATION
  Report Type: Report from Study
  Country: US (occurrence: US)
  Receive Date: 20170825
  Receipt Date: 20171109
  Transmission Date: 20180320
  Serious: No
  Sender: FDA-Public Use
  Company Number: PHEH2017US027219

PATIENT
  Age: 26 Year
  Sex: Female
  Weight: 81.63 kg

DRUGS (1)
  1. GILENYA [Suspect]
     Active Substance: FINGOLIMOD HYDROCHLORIDE
     Indication: RELAPSING-REMITTING MULTIPLE SCLEROSIS
     Dosage: 0.5 MG, QD
     Route: 048
     Dates: start: 20170821

REACTIONS (3)
  - Heart rate decreased [Recovered/Resolved]
  - Stress [Unknown]
  - Memory impairment [Unknown]

NARRATIVE: CASE EVENT DATE: 20170821
